FAERS Safety Report 18617926 (Version 3)
Quarter: 2021Q2

REPORT INFORMATION
  Report Type: Spontaneous
  Country: DE (occurrence: DE)
  Receive Date: 20201215
  Receipt Date: 20210607
  Transmission Date: 20210717
  Serious: Yes (Death)
  Sender: FDA-Public Use
  Company Number: DE-BAYER-2020-274203

PATIENT
  Age: 12 Year
  Sex: Female

DRUGS (4)
  1. NEXAVAR [Suspect]
     Active Substance: SORAFENIB
     Indication: ACUTE MYELOID LEUKAEMIA
     Dosage: 150 MG, BID
     Dates: start: 201605
  2. NEXAVAR [Suspect]
     Active Substance: SORAFENIB
     Indication: ACUTE MYELOID LEUKAEMIA
     Dosage: 100 MG, BID
     Dates: start: 20150713
  3. NEXAVAR [Suspect]
     Active Substance: SORAFENIB
     Indication: ACUTE MYELOID LEUKAEMIA
     Dosage: 300 MG, BID
     Dates: start: 20171201
  4. NEXAVAR [Suspect]
     Active Substance: SORAFENIB
     Indication: ACUTE MYELOID LEUKAEMIA
     Dosage: 200 MG, BID
     Dates: start: 20161216

REACTIONS (6)
  - Off label use [None]
  - Death [Fatal]
  - Product use in unapproved indication [None]
  - Abdominal pain [None]
  - Diarrhoea [None]
  - Product administered to patient of inappropriate age [None]

NARRATIVE: CASE EVENT DATE: 201507
